FAERS Safety Report 14712899 (Version 1)
Quarter: 2018Q2

REPORT INFORMATION
  Report Type: Spontaneous
  Country: GB (occurrence: GB)
  Receive Date: 20180404
  Receipt Date: 20180404
  Transmission Date: 20180711
  Serious: Yes (Other)
  Sender: FDA-Public Use
  Company Number: GB-TEVA-2018-GB-876868

PATIENT
  Age: 64 Year
  Sex: Female
  Weight: 58 kg

DRUGS (3)
  1. MULTIVITAMIN [Concomitant]
     Active Substance: VITAMINS
     Dosage: FOR THE OLDER PERSON
     Route: 065
  2. LORATADINE. [Concomitant]
     Active Substance: LORATADINE
     Route: 065
  3. OLANZAPINE. [Suspect]
     Active Substance: OLANZAPINE
     Indication: PSYCHOTIC DISORDER
     Route: 048

REACTIONS (3)
  - Blood cholesterol increased [Recovering/Resolving]
  - Abnormal weight gain [Recovering/Resolving]
  - Hypertension [Recovering/Resolving]
